FAERS Safety Report 25847551 (Version 1)
Quarter: 2025Q3

REPORT INFORMATION
  Report Type: Spontaneous
  Country: US (occurrence: None)
  Receive Date: 20250924
  Receipt Date: 20250924
  Transmission Date: 20251021
  Serious: Yes (Other)
  Sender: FDA-CTU
  Company Number: None

PATIENT
  Age: 24 Year
  Sex: Female

DRUGS (4)
  1. CYANOCOBALAMIN\TOPIRAMATE [Suspect]
     Active Substance: CYANOCOBALAMIN\TOPIRAMATE
     Indication: Weight decreased
     Route: 048
     Dates: start: 20250913, end: 20250917
  2. BUPROPION [Concomitant]
     Active Substance: BUPROPION
     Dates: start: 20250913, end: 20250917
  3. ONDANSETRON [Concomitant]
     Active Substance: ONDANSETRON
  4. METFORMIN [Concomitant]
     Active Substance: METFORMIN HYDROCHLORIDE

REACTIONS (11)
  - Heart rate increased [None]
  - Anxiety [None]
  - Nervousness [None]
  - Feeling hot [None]
  - Dizziness [None]
  - Hyperhidrosis [None]
  - Nausea [None]
  - Therapy interrupted [None]
  - Haematemesis [None]
  - Intestinal mucosal tear [None]
  - Epigastric discomfort [None]

NARRATIVE: CASE EVENT DATE: 20250917
